FAERS Safety Report 6862443-6 (Version None)
Quarter: 2010Q3

REPORT INFORMATION
  Report Type: 
  Country: None (occurrence: None)
  Receive Date: 20100716
  Receipt Date: 20100702
  Transmission Date: 20110219
  Serious: Yes (Hospitalization)
  Sender: FDA-Public Use
  Company Number: JP-1181999

PATIENT
  Age: 89 Year
  Sex: Male

DRUGS (6)
  1. BSS PLUS (BSS PLUS) INTRAOCULAR SOLUTION SOLUTION FOR INJECTION [Suspect]
     Indication: CATARACT OPERATION
     Dosage: INTRAOCULAR
     Route: 031
     Dates: start: 20091214, end: 20091214
  2. OPEGAN HI (HYALURONATE SODIUM [Concomitant]
  3. BENOXIL (OXYBUPROCAINE HYDROCHLORIDE [Concomitant]
  4. MYDRIN P [Concomitant]
  5. ISODINE (POVIDONE-IODINE) [Concomitant]
  6. XYLOCAINE [Concomitant]

REACTIONS (3)
  - EYE INFLAMMATION [None]
  - HYPERSENSITIVITY [None]
  - KERATITIS [None]
